FAERS Safety Report 10878335 (Version 1)
Quarter: 2015Q1

REPORT INFORMATION
  Report Type: Spontaneous
  Country: US (occurrence: US)
  Receive Date: 20150302
  Receipt Date: 20150302
  Transmission Date: 20150721
  Serious: Yes (Hospitalization)
  Sender: FDA-Public Use
  Company Number: US-ABBVIE-15P-163-1349392-00

PATIENT
  Sex: Male

DRUGS (2)
  1. ANDROGEL [Suspect]
     Active Substance: TESTOSTERONE
     Indication: BLOOD TESTOSTERONE DECREASED
     Route: 061
     Dates: start: 201210, end: 201303
  2. TESTOPEL [Suspect]
     Active Substance: TESTOSTERONE
     Indication: BLOOD TESTOSTERONE DECREASED
     Dosage: PELLETS IMPLANTED
     Route: 065
     Dates: start: 20130322

REACTIONS (7)
  - Physical disability [Unknown]
  - Pulmonary embolism [Unknown]
  - Economic problem [Unknown]
  - Fear [Unknown]
  - Social problem [Unknown]
  - Loss of employment [Unknown]
  - Anhedonia [Unknown]
